FAERS Safety Report 17795677 (Version 3)
Quarter: 2021Q1

REPORT INFORMATION
  Report Type: Spontaneous
  Country: CA (occurrence: CA)
  Receive Date: 20200516
  Receipt Date: 20210203
  Transmission Date: 20210419
  Serious: Yes (Other)
  Sender: FDA-Public Use
  Company Number: CA-SAMSUNG BIOEPIS-SB-2020-15803

PATIENT
  Age: 38 Year
  Sex: Male
  Weight: 98 kg

DRUGS (6)
  1. DIPHENHYDRAMINE. [Concomitant]
     Active Substance: DIPHENHYDRAMINE
     Indication: PREMEDICATION
     Route: 065
  2. INFLIXIMAB [Suspect]
     Active Substance: INFLIXIMAB
     Indication: CROHN^S DISEASE
     Route: 042
  3. ACETAMINOPHEN. [Concomitant]
     Active Substance: ACETAMINOPHEN
     Indication: PREMEDICATION
     Route: 065
  4. BENADRYL [Concomitant]
     Active Substance: DIPHENHYDRAMINE HYDROCHLORIDE
     Indication: PREMEDICATION
     Route: 048
  5. INFLIXIMAB [Suspect]
     Active Substance: INFLIXIMAB
     Route: 042
  6. AZATHIOPRINE SODIUM. [Concomitant]
     Active Substance: AZATHIOPRINE SODIUM
     Indication: PRODUCT USED FOR UNKNOWN INDICATION
     Route: 065

REACTIONS (16)
  - Condition aggravated [Unknown]
  - Product use issue [Not Recovered/Not Resolved]
  - Hernia [Unknown]
  - Blood pressure increased [Unknown]
  - Fatigue [Unknown]
  - Intentional product use issue [Unknown]
  - Inappropriate schedule of product administration [Unknown]
  - Oxygen saturation abnormal [Unknown]
  - Oxygen saturation decreased [Unknown]
  - Therapeutic response shortened [Unknown]
  - Off label use [Unknown]
  - Arthralgia [Unknown]
  - Body temperature fluctuation [Unknown]
  - Blood pressure fluctuation [Unknown]
  - Cystitis [Unknown]
  - Body temperature decreased [Unknown]
